FAERS Safety Report 4358233-9 (Version None)
Quarter: 2004Q2

REPORT INFORMATION
  Report Type: 
  Country: None (occurrence: None)
  Receive Date: 20040513
  Receipt Date: 20040513
  Transmission Date: 20050107
  Serious: Yes (Life-Threatening)
  Sender: FDA-Public Use
  Company Number: None

PATIENT
  Age: 64 Year
  Sex: Male
  Weight: 61 kg

DRUGS (1)
  1. ALEMTUZUMAB [Suspect]
     Indication: CARCINOMA
     Dosage: 30 MG QD INTRAVENOUS
     Route: 042
     Dates: start: 20040112, end: 20040118

REACTIONS (1)
  - PANCYTOPENIA [None]
